FAERS Safety Report 14328206 (Version 1)
Quarter: 2017Q4

REPORT INFORMATION
  Report Type: Spontaneous
  Country: CN (occurrence: CN)
  Receive Date: 20171227
  Receipt Date: 20171227
  Transmission Date: 20180321
  Serious: Yes (Other)
  Sender: FDA-Public Use
  Company Number: CN-PFIZER INC-2017546157

PATIENT
  Age: 6 Month
  Sex: Male

DRUGS (9)
  1. MIDAZOLAM [Concomitant]
     Active Substance: MIDAZOLAM HYDROCHLORIDE
     Dosage: UNK, AS NEEDED
     Route: 041
     Dates: start: 20141226, end: 20141230
  2. HEPARIN [Concomitant]
     Active Substance: HEPARIN SODIUM
     Dosage: 125000 IU, 1X/DAY
     Route: 041
     Dates: start: 20150109
  3. LINEZOLID. [Concomitant]
     Active Substance: LINEZOLID
     Dosage: 85 MG, Q8H
     Route: 048
     Dates: start: 20150109
  4. MEROPENEM. [Suspect]
     Active Substance: MEROPENEM
     Indication: MENINGITIS
     Dosage: 330MG, Q8H
     Route: 041
     Dates: start: 20141226, end: 20150107
  5. VANCOMYCIN [Concomitant]
     Active Substance: VANCOMYCIN
     Indication: INFECTION
     Dosage: 90 MG, Q6H
     Route: 041
     Dates: start: 20141226, end: 20141231
  6. VANCOMYCIN [Concomitant]
     Active Substance: VANCOMYCIN
     Dosage: 125 MG, Q6H
     Route: 041
     Dates: start: 20141231, end: 20150109
  7. PREDNISONE. [Concomitant]
     Active Substance: PREDNISONE
     Dosage: 10 MG, 1X/DAY
     Route: 048
     Dates: start: 20141226
  8. FLUCONAZOLE. [Concomitant]
     Active Substance: FLUCONAZOLE
     Dosage: 50 MG, 1X/DAY
     Route: 041
     Dates: start: 20141228, end: 20150109
  9. DIPYRIDAMOLE. [Concomitant]
     Active Substance: DIPYRIDAMOLE
     Dosage: 12.5 MG, TID
     Route: 048
     Dates: start: 20150107

REACTIONS (1)
  - Thrombocytosis [Recovering/Resolving]

NARRATIVE: CASE EVENT DATE: 20150107
